FAERS Safety Report 12443022 (Version 2)
Quarter: 2016Q4

REPORT INFORMATION
  Report Type: Spontaneous
  Country: US (occurrence: US)
  Receive Date: 20160607
  Receipt Date: 20161109
  Transmission Date: 20170207
  Serious: No
  Sender: FDA-Public Use
  Company Number: US-GLAXOSMITHKLINE-US2016079815

PATIENT

DRUGS (2)
  1. FLONASE [Suspect]
     Active Substance: FLUTICASONE PROPIONATE
     Indication: TINNITUS
  2. FLONASE [Suspect]
     Active Substance: FLUTICASONE PROPIONATE
     Indication: HEADACHE
     Dosage: UNK

REACTIONS (1)
  - Drug ineffective for unapproved indication [Unknown]
